FAERS Safety Report 21741469 (Version 1)
Quarter: 2022Q4

REPORT INFORMATION
  Report Type: Report from Study
  Country: CA (occurrence: CA)
  Receive Date: 20221216
  Receipt Date: 20221216
  Transmission Date: 20230112
  Serious: Yes (Other)
  Sender: FDA-Public Use
  Company Number: CA-HLS-202202242

PATIENT
  Sex: Male

DRUGS (1)
  1. CLOZARIL [Suspect]
     Active Substance: CLOZAPINE
     Indication: Product used for unknown indication
     Dosage: MORE THAN 10 YEARS
     Route: 048
     Dates: start: 20080421

REACTIONS (4)
  - Benign prostatic hyperplasia [Unknown]
  - Influenza [Unknown]
  - Inflammatory bowel disease [Unknown]
  - Suspected COVID-19 [Unknown]
